FAERS Safety Report 12576807 (Version 2)
Quarter: 2016Q4

REPORT INFORMATION
  Report Type: Spontaneous
  Country: US (occurrence: US)
  Receive Date: 20160720
  Receipt Date: 20161019
  Transmission Date: 20170207
  Serious: Yes (Other)
  Sender: FDA-Public Use
  Company Number: US-OTSUKA-2016_010862AA

PATIENT
  Age: 35 Year
  Sex: Male

DRUGS (1)
  1. REXULTI [Suspect]
     Active Substance: BREXPIPRAZOLE
     Indication: SCHIZOAFFECTIVE DISORDER
     Dosage: 0.5 MG, BID
     Route: 065

REACTIONS (3)
  - Feeling of despair [Unknown]
  - Suicidal ideation [Recovered/Resolved]
  - Product use issue [Unknown]
